FAERS Safety Report 5636921-1 (Version None)
Quarter: 2008Q1

REPORT INFORMATION
  Report Type: 
  Country: None (occurrence: None)
  Receive Date: 20080225
  Receipt Date: 20080212
  Transmission Date: 20080703
  Serious: Yes (Hospitalization)
  Sender: FDA-Public Use
  Company Number: GB-ROCHE-547474

PATIENT
  Sex: Female

DRUGS (7)
  1. RIVOTRIL [Suspect]
     Indication: DRUG USE FOR UNKNOWN INDICATION
     Route: 065
  2. CYCLIZINE [Suspect]
     Indication: DRUG USE FOR UNKNOWN INDICATION
     Route: 065
  3. BACLOFEN [Suspect]
     Indication: DRUG USE FOR UNKNOWN INDICATION
     Route: 048
     Dates: start: 20070504, end: 20070507
  4. BACLOFEN [Suspect]
     Route: 048
     Dates: start: 20070507, end: 20070517
  5. BACLOFEN [Suspect]
     Route: 048
     Dates: start: 20070527
  6. BACLOFEN [Suspect]
     Route: 048
     Dates: start: 20070602
  7. BACLOFEN [Suspect]
     Route: 048

REACTIONS (24)
  - ANOREXIA [None]
  - ANXIETY [None]
  - DEPRESSION [None]
  - DIARRHOEA [None]
  - DIPLOPIA [None]
  - DRUG WITHDRAWAL SYNDROME [None]
  - DRY MOUTH [None]
  - DYSGEUSIA [None]
  - DYSPEPSIA [None]
  - EAR INFECTION [None]
  - HALLUCINATION [None]
  - HYPERHIDROSIS [None]
  - MENSTRUATION IRREGULAR [None]
  - MOOD ALTERED [None]
  - MUSCLE DISORDER [None]
  - NAUSEA [None]
  - NIGHTMARE [None]
  - PALPITATIONS [None]
  - PARAESTHESIA [None]
  - RETCHING [None]
  - TREMOR [None]
  - VAGINAL DISCHARGE [None]
  - VERTIGO [None]
  - WEIGHT DECREASED [None]
